FAERS Safety Report 23469835 (Version 1)
Quarter: 2024Q1

REPORT INFORMATION
  Report Type: Spontaneous
  Country: US (occurrence: None)
  Receive Date: 20240202
  Receipt Date: 20240202
  Transmission Date: 20240410
  Serious: Yes (Hospitalization)
  Sender: FDA-Public Use
  Company Number: None

PATIENT
  Age: 66 Year
  Sex: Female
  Weight: 86.5 kg

DRUGS (3)
  1. FLUOROURACIL [Suspect]
     Active Substance: FLUOROURACIL
     Dates: end: 20240118
  2. LEUCOVORIN CALCIUM [Suspect]
     Active Substance: LEUCOVORIN CALCIUM
     Dates: end: 20240118
  3. ELOXATIN [Suspect]
     Active Substance: OXALIPLATIN
     Dates: end: 20240118

REACTIONS (13)
  - Oropharyngeal pain [None]
  - Upper respiratory tract congestion [None]
  - Tachycardia [None]
  - Sepsis [None]
  - Systemic inflammatory response syndrome [None]
  - Pneumonia [None]
  - Neutrophil count decreased [None]
  - Fall [None]
  - Skin laceration [None]
  - Muscular weakness [None]
  - Paraesthesia [None]
  - Tenderness [None]
  - Arthralgia [None]

NARRATIVE: CASE EVENT DATE: 20240120
